FAERS Safety Report 9458036 (Version 2)
Quarter: 2013Q3

REPORT INFORMATION
  Report Type: Spontaneous
  Country: NL (occurrence: None)
  Receive Date: 20130812
  Receipt Date: 20130919
  Transmission Date: 20140515
  Serious: Yes (Hospitalization)
  Sender: FDA-Public Use
  Company Number: INT_00284_2013

PATIENT
  Age: 41 Year
  Sex: Male

DRUGS (9)
  1. TENIPOSIDE [Suspect]
     Indication: MALIGNANT LYMPHOID NEOPLASM
     Dosage: DF, INTRAVENOUS (NOT OTHERWISE SPECIFIED)
     Route: 042
     Dates: start: 20121027, end: 20121027
  2. CARMUSTINE [Suspect]
     Indication: MALIGNANT LYMPHOID NEOPLASM
     Dosage: DF, INTRAVENOUS (NOT OTHERWISE SPECIFIED)
     Route: 042
  3. PREDNISOLONE [Suspect]
     Indication: MALIGNANT LYMPHOID NEOPLASM
     Dosage: DF, INTRAVENOUS (NOT OTHERWISE SPECIFIED)
     Route: 048
     Dates: start: 20121026, end: 20121027
  4. METHOTREXATE (METHOTREXATE) [Suspect]
     Indication: MALIGNANT LYMPHOID NEOPLASM
     Dosage: DF, INTRAVENOUS (NOT OTHERWISE SPECIFIED)
     Route: 042
     Dates: start: 20121026, end: 20121026
  5. RITUXIMAB [Suspect]
     Indication: MALIGNANT LYMPHOID NEOPLASM
     Dosage: DF, INTRAVENOUS (NOT OTHERWISE SPECIFIED)
     Route: 042
     Dates: start: 20121025, end: 20121025
  6. CALCIUM FOLINATE [Concomitant]
  7. CIPROFLOXACIN [Concomitant]
  8. FLUCONAZOLE [Concomitant]
  9. VALACYCLOVIR HYDROCHLORIDE [Concomitant]

REACTIONS (1)
  - Renal failure acute [None]
